FAERS Safety Report 5347875-X (Version None)
Quarter: 2007Q2

REPORT INFORMATION
  Report Type: 
  Country: None (occurrence: None)
  Receive Date: 20070515
  Receipt Date: 20061204
  Transmission Date: 20071010
  Serious: Yes (Other)
  Sender: FDA-Public Use
  Company Number: 2006BH014648

PATIENT
  Age: 26 Year
  Sex: Female

DRUGS (1)
  1. LACTATED RINGER'S [Suspect]
     Indication: PREGNANCY
     Dosage: 1000 CC; IV
     Route: 042
     Dates: start: 20061116, end: 20061116

REACTIONS (1)
  - BRONCHOSPASM [None]
